FAERS Safety Report 21633343 (Version 3)
Quarter: 2022Q4

REPORT INFORMATION
  Report Type: Spontaneous
  Country: CA (occurrence: CA)
  Receive Date: 20221123
  Receipt Date: 20221208
  Transmission Date: 20230113
  Serious: Yes (Other)
  Sender: FDA-Public Use
  Company Number: CA-PFIZER INC-202201303095

PATIENT
  Age: 29 Year
  Sex: Female

DRUGS (4)
  1. ABRILADA [Suspect]
     Active Substance: ADALIMUMAB-AFZB
     Indication: Hidradenitis
     Dosage: 1 DF, 160 MG ON WEEK 0, 80 MG ON WEEK 2 THEN 40 MG ONCE A WEEK STARTING ON WEEK 4
     Route: 058
     Dates: start: 20220928
  2. ABRILADA [Suspect]
     Active Substance: ADALIMUMAB-AFZB
     Dosage: 1 DF, 160 MG ON WEEK 0, 80 MG ON WEEK 2 THEN 40 MG ONCE A WEEK STARTING ON WEEK 4
     Route: 058
     Dates: start: 20221118
  3. SPIRAZOLE [Concomitant]
     Dosage: 1 DF, 1X/DAY, 1 CAP
     Route: 065
  4. TETRACYCLINE [Concomitant]
     Active Substance: TETRACYCLINE
     Dosage: 1 DF, 2X/DAY, 2 CAPS
     Route: 065

REACTIONS (5)
  - Erythema [Recovered/Resolved]
  - Pain in extremity [Recovered/Resolved]
  - Oedema peripheral [Recovered/Resolved]
  - Abscess limb [Not Recovered/Not Resolved]
  - Inappropriate schedule of product administration [Unknown]

NARRATIVE: CASE EVENT DATE: 20220101
